FAERS Safety Report 4342370-9 (Version None)
Quarter: 2004Q2

REPORT INFORMATION
  Report Type: 
  Country: None (occurrence: None)
  Receive Date: 20040421
  Receipt Date: 20040415
  Transmission Date: 20050107
  Serious: Yes (Death, Hospitalization)
  Sender: FDA-Public Use
  Company Number: PHBS2004BR05121

PATIENT
  Age: 61 Year
  Sex: Male

DRUGS (3)
  1. CYCLOSPORINE [Suspect]
     Indication: RENAL TRANSPLANT
     Route: 065
     Dates: start: 19931228
  2. AZATHIOPRINE [Suspect]
     Indication: RENAL TRANSPLANT
     Route: 065
     Dates: start: 19931228
  3. PREDNISONE [Suspect]
     Indication: RENAL TRANSPLANT
     Route: 065

REACTIONS (16)
  - ABDOMINAL PAIN [None]
  - ARTERIOVENOUS FISTULA, ACQUIRED [None]
  - ASTHENIA [None]
  - BRAIN ABSCESS [None]
  - BRAIN OEDEMA [None]
  - CONFUSIONAL STATE [None]
  - ESCHERICHIA SEPSIS [None]
  - FUNGAL INFECTION [None]
  - HEMIPARESIS [None]
  - HEMIPLEGIA [None]
  - HYPOAESTHESIA [None]
  - PAIN IN EXTREMITY [None]
  - PYREXIA [None]
  - SEPTIC SHOCK [None]
  - SHIFT TO THE LEFT [None]
  - WHITE BLOOD CELL COUNT INCREASED [None]
